FAERS Safety Report 14662362 (Version 1)
Quarter: 2018Q1

REPORT INFORMATION
  Report Type: Spontaneous
  Country: IT (occurrence: IT)
  Receive Date: 20180321
  Receipt Date: 20180321
  Transmission Date: 20180509
  Serious: Yes (Hospitalization)
  Sender: FDA-Public Use
  Company Number: IT-ROCHE-2087220

PATIENT
  Age: 48 Year
  Sex: Male

DRUGS (6)
  1. ZITROMAX [Concomitant]
     Active Substance: AZITHROMYCIN
     Route: 065
  2. SERTRALINE [Concomitant]
     Active Substance: SERTRALINE HYDROCHLORIDE
     Route: 065
  3. SYMBICORT [Concomitant]
     Active Substance: BUDESONIDE\FORMOTEROL FUMARATE DIHYDRATE
     Route: 065
  4. BRONCOVALEAS [Concomitant]
     Active Substance: ALBUTEROL
     Route: 065
  5. PULMOZYME [Suspect]
     Active Substance: DORNASE ALFA
     Indication: CYSTIC FIBROSIS
     Route: 055
     Dates: start: 20170101, end: 20170607
  6. LANSOPRAZOLE. [Concomitant]
     Active Substance: LANSOPRAZOLE
     Route: 065

REACTIONS (3)
  - Respiratory failure [Unknown]
  - Dyspnoea [Unknown]
  - Sputum abnormal [Unknown]

NARRATIVE: CASE EVENT DATE: 20170607
